FAERS Safety Report 8173661-1 (Version None)
Quarter: 2012Q1

REPORT INFORMATION
  Report Type: 
  Country: None (occurrence: None)
  Receive Date: 20120227
  Receipt Date: 20120215
  Transmission Date: 20120608
  Serious: Yes (Disabling, Other)
  Sender: FDA-Public Use
  Company Number: ACO_28664_2011

PATIENT

DRUGS (1)
  1. AMPYRA [Suspect]
     Indication: PRODUCT USED FOR UNKNOWN INDICATION
     Dates: start: 20111115, end: 20111220

REACTIONS (5)
  - BALANCE DISORDER [None]
  - PAIN IN EXTREMITY [None]
  - CONSTIPATION [None]
  - ABASIA [None]
  - DIZZINESS [None]
